FAERS Safety Report 13441892 (Version 2)
Quarter: 2017Q2

REPORT INFORMATION
  Report Type: Spontaneous
  Country: IT (occurrence: IT)
  Receive Date: 20170413
  Receipt Date: 20170502
  Transmission Date: 20170830
  Serious: Yes (Hospitalization)
  Sender: FDA-Public Use
  Company Number: PHHY2017IT053883

PATIENT
  Age: 25 Year
  Sex: Female

DRUGS (1)
  1. ALPRAZOLAM. [Suspect]
     Active Substance: ALPRAZOLAM
     Indication: PRODUCT USED FOR UNKNOWN INDICATION
     Dosage: 20 ML, ONCE/SINGLE
     Route: 048
     Dates: start: 20170402, end: 20170402

REACTIONS (4)
  - Intentional self-injury [Unknown]
  - Overdose [Unknown]
  - Ataxia [Unknown]
  - Sedation [Unknown]

NARRATIVE: CASE EVENT DATE: 20170402
